FAERS Safety Report 20578917 (Version 1)
Quarter: 2022Q1

REPORT INFORMATION
  Report Type: Spontaneous
  Country: US (occurrence: None)
  Receive Date: 20220310
  Receipt Date: 20220310
  Transmission Date: 20220423
  Serious: Yes (Hospitalization)
  Sender: FDA-Public Use
  Company Number: None

PATIENT
  Sex: Female

DRUGS (1)
  1. FASENRA [Suspect]
     Active Substance: BENRALIZUMAB
     Indication: Asthma
     Dosage: OTHER FREQUENCY : EVERY 8 WEEKS ;?
     Route: 058
     Dates: start: 20220225

REACTIONS (3)
  - Mental status changes [None]
  - Pain [None]
  - Sepsis [None]
